FAERS Safety Report 16099026 (Version 1)
Quarter: 2019Q1

REPORT INFORMATION
  Report Type: Spontaneous
  Country: US (occurrence: US)
  Receive Date: 20190321
  Receipt Date: 20190321
  Transmission Date: 20190418
  Serious: No
  Sender: FDA-Public Use
  Company Number: US-PFIZER INC-2019118078

PATIENT
  Age: 43 Year
  Sex: Male

DRUGS (1)
  1. AMLODIPINE BESILATE [Suspect]
     Active Substance: AMLODIPINE BESYLATE
     Indication: HYPERTENSION
     Dosage: 10 MG, 1X/DAY [10MG 30 DAY SUPPLY, ONCE A DAY]

REACTIONS (3)
  - Drug ineffective [Unknown]
  - Feeling abnormal [Unknown]
  - Paraesthesia [Unknown]
